FAERS Safety Report 7529476-8 (Version None)
Quarter: 2011Q2

REPORT INFORMATION
  Report Type: 
  Country: None (occurrence: None)
  Receive Date: 20110531
  Receipt Date: 20110516
  Transmission Date: 20111010
  Serious: Yes (Life-Threatening, Hospitalization, Other)
  Sender: FDA-Public Use
  Company Number: 2011MA005983

PATIENT
  Age: 50 Year
  Sex: Male

DRUGS (1)
  1. ALBUTEROL SULFATE [Suspect]
     Indication: STATUS ASTHMATICUS
     Dosage: 180 UG; Q2, INH
     Route: 055

REACTIONS (9)
  - STATUS ASTHMATICUS [None]
  - CARDIOTOXICITY [None]
  - STRESS CARDIOMYOPATHY [None]
  - ELECTROCARDIOGRAM ST SEGMENT ELEVATION [None]
  - INCORRECT DOSE ADMINISTERED [None]
  - VENTRICULAR HYPOKINESIA [None]
  - INAPPROPRIATE SCHEDULE OF DRUG ADMINISTRATION [None]
  - CARDIAC DISORDER [None]
  - CARDIAC ENZYMES INCREASED [None]
